FAERS Safety Report 22372503 (Version 1)
Quarter: 2023Q2

REPORT INFORMATION
  Report Type: Spontaneous
  Country: FR (occurrence: FR)
  Receive Date: 20230526
  Receipt Date: 20230526
  Transmission Date: 20230722
  Serious: Yes (Other)
  Sender: FDA-Public Use
  Company Number: None

PATIENT
  Age: 30 Year
  Sex: Female

DRUGS (3)
  1. ZOLPIDEM [Suspect]
     Active Substance: ZOLPIDEM TARTRATE
     Indication: Depressed mood
     Dosage: 4 TABLET
     Route: 048
     Dates: start: 20230404, end: 20230404
  2. OXAZEPAM [Suspect]
     Active Substance: OXAZEPAM
     Indication: Depressed mood
     Dosage: 20 TABLET (SCORED TABLET)
     Route: 048
     Dates: start: 20230404, end: 20230404
  3. METHADONE [Suspect]
     Active Substance: METHADONE HYDROCHLORIDE
     Indication: Drug withdrawal maintenance therapy
     Dosage: 30 MILLIGRAM, QD
     Route: 048

REACTIONS (3)
  - Depression suicidal [Recovering/Resolving]
  - Drug abuse [Recovering/Resolving]
  - Toxicity to various agents [Recovered/Resolved]

NARRATIVE: CASE EVENT DATE: 20230404
